FAERS Safety Report 25978419 (Version 2)
Quarter: 2025Q4

REPORT INFORMATION
  Report Type: Spontaneous
  Country: US (occurrence: US)
  Receive Date: 20251030
  Receipt Date: 20251211
  Transmission Date: 20260118
  Serious: Yes (Death, Hospitalization)
  Sender: LEXICON PHARMACEUTICALS
  Company Number: US-LEX-000447

PATIENT
  Age: 81 Year
  Sex: Male

DRUGS (1)
  1. INPEFA [Suspect]
     Active Substance: SOTAGLIFLOZIN
     Indication: Product used for unknown indication
     Route: 048
     Dates: start: 20241106

REACTIONS (4)
  - Death [Fatal]
  - Product distribution issue [Unknown]
  - Product temperature excursion issue [Unknown]
  - Multimorbidity [Unknown]

NARRATIVE: CASE EVENT DATE: 20251014
